FAERS Safety Report 22105339 (Version 1)
Quarter: 2023Q1

REPORT INFORMATION
  Report Type: Spontaneous
  Country: US (occurrence: US)
  Receive Date: 20230317
  Receipt Date: 20230317
  Transmission Date: 20230417
  Serious: Yes (Other)
  Sender: FDA-Public Use
  Company Number: US-ABBVIE-4338191

PATIENT
  Sex: Female

DRUGS (2)
  1. RINVOQ [Suspect]
     Active Substance: UPADACITINIB
     Indication: Product used for unknown indication
     Route: 048
  2. plaquinil [Concomitant]
     Indication: Product used for unknown indication

REACTIONS (3)
  - Decompression sickness [Unknown]
  - Dehydration [Unknown]
  - Rheumatoid arthritis [Unknown]
